FAERS Safety Report 15479496 (Version 1)
Quarter: 2018Q4

REPORT INFORMATION
  Report Type: Spontaneous
  Country: FR (occurrence: FR)
  Receive Date: 20181009
  Receipt Date: 20181009
  Transmission Date: 20190205
  Serious: Yes (Life-Threatening)
  Sender: FDA-Public Use
  Company Number: FR-MYLANLABS-2018M1074082

PATIENT
  Age: 3 Day
  Sex: Female
  Weight: 3.13 kg

DRUGS (2)
  1. FENTANYL MYLAN [Suspect]
     Active Substance: FENTANYL
     Indication: SEDATION
     Dosage: 2 ?G/KG, QH
     Route: 042
     Dates: end: 20180129
  2. MIDAZOLAM [Suspect]
     Active Substance: MIDAZOLAM HYDROCHLORIDE
     Indication: SEDATION
     Dosage: UNK
     Route: 042

REACTIONS (1)
  - Hypotension [Recovered/Resolved]

NARRATIVE: CASE EVENT DATE: 201801
